FAERS Safety Report 16404175 (Version 1)
Quarter: 2019Q2

REPORT INFORMATION
  Report Type: Spontaneous
  Country: US (occurrence: US)
  Receive Date: 20190607
  Receipt Date: 20190607
  Transmission Date: 20190711
  Serious: No
  Sender: FDA-Public Use
  Company Number: US-ASTELLAS-2019US008902

PATIENT
  Age: 80 Year
  Sex: Male

DRUGS (3)
  1. XOSPATA [Suspect]
     Active Substance: GILTERITINIB
     Dosage: 80 MG, TOTAL DOSE (2 X 40 MG THIS MORNING)
     Dates: start: 20190304
  2. XOSPATA [Suspect]
     Active Substance: GILTERITINIB
     Route: 065
  3. XOSPATA [Suspect]
     Active Substance: GILTERITINIB
     Indication: PRODUCT USED FOR UNKNOWN INDICATION
     Dosage: 80 MG, ONCE DAILY 92 X40 MG TABLS)
     Route: 065

REACTIONS (2)
  - Treatment noncompliance [Unknown]
  - Underdose [Unknown]

NARRATIVE: CASE EVENT DATE: 20190304
